FAERS Safety Report 19761498 (Version 1)
Quarter: 2021Q3

REPORT INFORMATION
  Report Type: Spontaneous
  Country: FR (occurrence: FR)
  Receive Date: 20210827
  Receipt Date: 20210827
  Transmission Date: 20211014
  Serious: Yes (Hospitalization, Other)
  Sender: FDA-Public Use
  Company Number: FR-BAUSCH-BL-2021-028233

PATIENT
  Sex: Male

DRUGS (34)
  1. GLUCOSE [Suspect]
     Active Substance: DEXTROSE
     Indication: PARENTERAL NUTRITION
     Route: 065
     Dates: start: 20210729, end: 20210729
  2. PHOCYTAN [Suspect]
     Active Substance: .ALPHA.-GLUCOSE-1-PHOSPHATE
     Dosage: DOSE REINTRODUCED
     Route: 065
  3. CALCIUM GLUCONATE. [Suspect]
     Active Substance: CALCIUM GLUCONATE
     Indication: PARENTERAL NUTRITION
     Dosage: DOSE REINTRODUCED
     Route: 065
     Dates: start: 20210729, end: 20210729
  4. NUTRYELT [Suspect]
     Active Substance: IRON\MINERALS\POTASSIUM IOD\SODIUM FLUORIDE\SODIUM MOLYBDATE\SODIUM SELENITE\ZINC
     Indication: PARENTERAL NUTRITION
     Dosage: DOSE REINTRODUCED
     Route: 065
     Dates: start: 20210729, end: 20210729
  5. SMOFKABIVEN [Suspect]
     Active Substance: AMINO ACIDS\DEXTROSE\ELECTROLYTES NOS\SOYBEAN OIL
     Dosage: DOSE REINTRODUCED
     Route: 065
  6. SODIUM LACTATE. [Suspect]
     Active Substance: SODIUM LACTATE
     Indication: PARENTERAL NUTRITION
     Dosage: DOSE REINTRODUCED
     Route: 065
     Dates: start: 20210729, end: 20210729
  7. KCL [Suspect]
     Active Substance: POTASSIUM CHLORIDE
     Indication: PARENTERAL NUTRITION
     Dosage: DOSE REINTRODUCED
     Route: 065
     Dates: start: 20210729, end: 20210729
  8. SOLUVIT [Suspect]
     Active Substance: VITAMINS
     Indication: PARENTERAL NUTRITION
     Dosage: DOSE REINTRODUCED
     Route: 065
     Dates: start: 20210729, end: 20210729
  9. VIT E EPHYNAL [Suspect]
     Active Substance: .ALPHA.-TOCOPHEROL ACETATE
     Indication: PARENTERAL NUTRITION
     Route: 065
     Dates: start: 20210729, end: 20210729
  10. FAMOTIDINE. [Suspect]
     Active Substance: FAMOTIDINE
     Indication: PARENTERAL NUTRITION
     Dosage: DOSE REINTRODUCED
     Route: 065
     Dates: start: 20210729, end: 20210729
  11. CALCIUM GLUCONATE. [Suspect]
     Active Substance: CALCIUM GLUCONATE
     Dosage: DOSE REINTRODUCED
     Route: 065
  12. WATER FOR INJECTABLE PREPARATIONS [Suspect]
     Active Substance: WATER
     Indication: PARENTERAL NUTRITION
     Dosage: DOSE REINTRODUCED
     Route: 065
     Dates: start: 20210729, end: 20210729
  13. SMOFKABIVEN [Suspect]
     Active Substance: AMINO ACIDS\DEXTROSE\ELECTROLYTES NOS\SOYBEAN OIL
     Indication: PARENTERAL NUTRITION
     Dosage: DOSE REINTRODUCED
     Route: 065
     Dates: start: 20210729, end: 20210729
  14. SODIUM CHLORIDE. [Suspect]
     Active Substance: SODIUM CHLORIDE
     Indication: PARENTERAL NUTRITION
     Dosage: DOSE REINTRODUCED
     Route: 065
     Dates: start: 20210729, end: 20210729
  15. VINTENE [Suspect]
     Active Substance: AMINO ACIDS, SOURCE UNSPECIFIED
     Dosage: SOLUTION INJECTABLE POUR PERFUSION, DOSE REINTRODUCED
     Route: 065
  16. SODIUM LACTATE. [Suspect]
     Active Substance: SODIUM LACTATE
     Dosage: DOSE REINTRODUCED
     Route: 065
  17. VITALIPID INFANT [Suspect]
     Active Substance: ERGOCALCIFEROL\PHYTONADIONE\TOCOPHEROL\VITAMIN A PALMITATE
     Dosage: DOSE REINTRODUCED
     Route: 065
  18. SELENIUM [Suspect]
     Active Substance: SELENIUM
     Indication: PARENTERAL NUTRITION
     Dosage: DOSE REINTRODUCED
     Route: 065
     Dates: start: 20210729, end: 20210729
  19. VINTENE [Suspect]
     Active Substance: AMINO ACIDS, SOURCE UNSPECIFIED
     Indication: PARENTERAL NUTRITION
     Dosage: SOLUTION INJECTABLE POUR PERFUSION, DOSE REINTRODUCED
     Route: 065
     Dates: start: 20210729, end: 20210729
  20. PHOCYTAN [Suspect]
     Active Substance: .ALPHA.-GLUCOSE-1-PHOSPHATE
     Indication: PARENTERAL NUTRITION
     Dosage: DOSE REINTRODUCED
     Route: 065
     Dates: start: 20210729, end: 20210729
  21. MAGNESIUM CHLORIDE. [Suspect]
     Active Substance: MAGNESIUM CHLORIDE
     Dosage: DOSE REINTRODUCED
     Route: 065
  22. VITALIPID INFANT [Suspect]
     Active Substance: ERGOCALCIFEROL\PHYTONADIONE\TOCOPHEROL\VITAMIN A PALMITATE
     Indication: PARENTERAL NUTRITION
     Dosage: DOSE REINTRODUCED
     Route: 065
     Dates: start: 20210729, end: 20210729
  23. NUTRYELT [Suspect]
     Active Substance: IRON\MINERALS\POTASSIUM IOD\SODIUM FLUORIDE\SODIUM MOLYBDATE\SODIUM SELENITE\ZINC
     Dosage: DOSE REINTRODUCED
     Route: 065
  24. WATER FOR INJECTABLE PREPARATIONS [Suspect]
     Active Substance: WATER
     Dosage: DOSE REINTRODUCED
     Route: 065
  25. FAMOTIDINE. [Suspect]
     Active Substance: FAMOTIDINE
     Dosage: DOSE REINTRODUCED
     Route: 065
  26. GLUCOSE [Suspect]
     Active Substance: DEXTROSE
     Route: 065
  27. SODIUM CHLORIDE. [Suspect]
     Active Substance: SODIUM CHLORIDE
     Dosage: DOSE REINTRODUCED
     Route: 065
  28. SELENIUM [Suspect]
     Active Substance: SELENIUM
     Dosage: DOSE REINTRODUCED
     Route: 065
  29. L?CARNITINE [Suspect]
     Active Substance: LEVOCARNITINE
     Indication: PARENTERAL NUTRITION
     Dosage: DOSE REINTRODUCED
     Route: 065
     Dates: start: 20210729, end: 20210729
  30. SOLUVIT [Suspect]
     Active Substance: VITAMINS
     Dosage: DOSE REINTRODUCED
     Route: 065
  31. VIT E EPHYNAL [Suspect]
     Active Substance: .ALPHA.-TOCOPHEROL ACETATE
     Route: 065
  32. KCL [Suspect]
     Active Substance: POTASSIUM CHLORIDE
     Dosage: DOSE REINTRODUCED
     Route: 065
  33. L?CARNITINE [Suspect]
     Active Substance: LEVOCARNITINE
     Dosage: DOSE REINTRODUCED
     Route: 065
  34. MAGNESIUM CHLORIDE. [Suspect]
     Active Substance: MAGNESIUM CHLORIDE
     Indication: PARENTERAL NUTRITION
     Dosage: DOSE REINTRODUCED
     Route: 065
     Dates: start: 20210729, end: 20210729

REACTIONS (1)
  - Anaphylactic reaction [Recovered/Resolved]

NARRATIVE: CASE EVENT DATE: 20210729
